FAERS Safety Report 13033347 (Version 2)
Quarter: 2017Q4

REPORT INFORMATION
  Report Type: Spontaneous
  Country: US (occurrence: US)
  Receive Date: 20161216
  Receipt Date: 20171228
  Transmission Date: 20180320
  Serious: Yes (Other)
  Sender: FDA-Public Use
  Company Number: US-SUN PHARMACEUTICAL INDUSTRIES LTD-2016US-129554

PATIENT
  Sex: Male

DRUGS (6)
  1. PACLITAXEL. [Suspect]
     Active Substance: PACLITAXEL
     Indication: BLADDER TRANSITIONAL CELL CARCINOMA
     Dosage: DAYS 1 AND 8;3 WEEKS CYCLES
     Route: 065
  2. GEMCITABINE [Suspect]
     Active Substance: GEMCITABINE\GEMCITABINE HYDROCHLORIDE
     Indication: METASTASIS
  3. CISPLATIN. [Suspect]
     Active Substance: CISPLATIN
     Indication: BLADDER TRANSITIONAL CELL CARCINOMA
     Dosage: DAY 1;3 WEEKS CYCLES
     Route: 065
  4. GEMCITABINE [Suspect]
     Active Substance: GEMCITABINE\GEMCITABINE HYDROCHLORIDE
     Indication: BLADDER TRANSITIONAL CELL CARCINOMA
     Dosage: DAYS 1 AND 8;3 WEEKS CYCLES
     Route: 065
  5. PACLITAXEL. [Suspect]
     Active Substance: PACLITAXEL
     Indication: METASTASIS
  6. CISPLATIN. [Suspect]
     Active Substance: CISPLATIN
     Indication: METASTASIS

REACTIONS (1)
  - Deep vein thrombosis [Unknown]
